FAERS Safety Report 17680523 (Version 1)
Quarter: 2020Q2

REPORT INFORMATION
  Report Type: Report from Study
  Country: US (occurrence: US)
  Receive Date: 20200417
  Receipt Date: 20200417
  Transmission Date: 20200714
  Serious: Yes (Other)
  Sender: FDA-Public Use
  Company Number: US-ROCHE-2421018

PATIENT
  Age: 54 Year
  Sex: Female
  Weight: 87.4 kg

DRUGS (3)
  1. PEGYLATED LIPOSOMAL DOXORUBICIN [Suspect]
     Active Substance: DOXORUBICIN
     Indication: OVARIAN CANCER
     Dosage: THE DATE OF MOST RECENT DOSE: 21/MAY/2019.
     Route: 042
     Dates: start: 20190521
  2. ATEZOLIZUMAB. [Suspect]
     Active Substance: ATEZOLIZUMAB
     Indication: OVARIAN CANCER
     Dosage: THE DATE OF MOST RECENT DOSE: 21/MAY/2019
     Route: 042
     Dates: start: 20190226
  3. BEVACIZUMAB. [Suspect]
     Active Substance: BEVACIZUMAB
     Indication: OVARIAN CANCER
     Dosage: THE DATE OF MOST RECENT DOSE: 21/MAY/2019.
     Route: 042
     Dates: start: 20190226

REACTIONS (1)
  - Rash maculo-papular [Unknown]

NARRATIVE: CASE EVENT DATE: 20190529
